FAERS Safety Report 7089122-7 (Version None)
Quarter: 2010Q4

REPORT INFORMATION
  Report Type: 
  Country: None (occurrence: None)
  Receive Date: 20101108
  Receipt Date: 20101103
  Transmission Date: 20110411
  Serious: Yes (Other)
  Sender: FDA-Public Use
  Company Number: TW-BRISTOL-MYERS SQUIBB COMPANY-15361603

PATIENT
  Age: 56 Year
  Sex: Male

DRUGS (3)
  1. CYCLOPHOSPHAMIDE [Suspect]
     Indication: URETERIC CANCER
  2. DOXORUBICIN [Suspect]
     Indication: URETERIC CANCER
  3. METHOTREXATE [Suspect]
     Indication: URETERIC CANCER

REACTIONS (4)
  - GASTRIC DISORDER [None]
  - NAUSEA [None]
  - PNEUMATOSIS INTESTINALIS [None]
  - VOMITING [None]
